FAERS Safety Report 18861520 (Version 1)
Quarter: 2021Q1

REPORT INFORMATION
  Report Type: Spontaneous
  Country: CN (occurrence: CN)
  Receive Date: 20210208
  Receipt Date: 20210208
  Transmission Date: 20210420
  Serious: Yes (Life-Threatening)
  Sender: FDA-Public Use
  Company Number: NVSC2021CN026833

PATIENT
  Age: 28 Year
  Sex: Female
  Weight: 43 kg

DRUGS (2)
  1. SACUBITRIL,VALSARTAN [Suspect]
     Active Substance: SACUBITRIL\VALSARTAN
     Indication: CARDIAC FAILURE
     Dosage: 1 DF (25 MG), BID
     Route: 048
     Dates: start: 20200228, end: 20200229
  2. METOPROLOL TARTRATE. [Suspect]
     Active Substance: METOPROLOL TARTRATE
     Indication: HEART RATE DECREASED
     Dosage: 12.5 MG, BID
     Route: 048
     Dates: start: 20200228, end: 20200229

REACTIONS (7)
  - Vomiting [Recovering/Resolving]
  - Dizziness [Recovering/Resolving]
  - Hyperhidrosis [Unknown]
  - Nausea [Recovering/Resolving]
  - Blood pressure decreased [Recovering/Resolving]
  - Discomfort [Not Recovered/Not Resolved]
  - Peripheral coldness [Unknown]

NARRATIVE: CASE EVENT DATE: 20200229
